FAERS Safety Report 10109861 (Version 3)
Quarter: 2015Q1

REPORT INFORMATION
  Report Type: Spontaneous
  Country: US (occurrence: None)
  Receive Date: 20140421
  Receipt Date: 20150120
  Transmission Date: 20150720
  Serious: No
  Sender: FDA-Public Use
  Company Number: AEGR000368

PATIENT
  Age: 62 Year
  Sex: Female
  Weight: 72.1 kg

DRUGS (6)
  1. ASA(ACETYLSALICYLIC ACID) [Concomitant]
  2. METOPROLOL(METOPROLOL TARTRATE) [Concomitant]
  3. ZETIA [Concomitant]
     Active Substance: EZETIMIBE
  4. PLAVIX(CLOPIDOGREL BISULFATE) [Concomitant]
  5. CRESTOR [Concomitant]
     Active Substance: ROSUVASTATIN CALCIUM
  6. JUXTAPID [Suspect]
     Active Substance: LOMITAPIDE MESYLATE
     Indication: TYPE IIA HYPERLIPIDAEMIA
     Route: 048
     Dates: start: 20140220, end: 2014

REACTIONS (4)
  - Fatigue [None]
  - Diarrhoea [None]
  - Stomatitis [None]
  - Weight decreased [None]

NARRATIVE: CASE EVENT DATE: 201403
